FAERS Safety Report 7545659-5 (Version None)
Quarter: 2011Q2

REPORT INFORMATION
  Report Type: 
  Country: None (occurrence: None)
  Receive Date: 20110614
  Receipt Date: 20110606
  Transmission Date: 20111010
  Serious: Yes (Other)
  Sender: FDA-Public Use
  Company Number: US-BRISTOL-MYERS SQUIBB COMPANY-15811821

PATIENT
  Age: 55 Year
  Sex: Male

DRUGS (4)
  1. BLINDED: SAXAGLIPTIN [Suspect]
     Indication: TYPE 2 DIABETES MELLITUS
     Dates: start: 20100716
  2. INSULIN GLARGINE [Suspect]
     Indication: DIABETES MELLITUS
  3. PLACEBO [Suspect]
     Indication: TYPE 2 DIABETES MELLITUS
     Dates: start: 20100716
  4. INSULIN ASPART [Suspect]
     Indication: DIABETES MELLITUS

REACTIONS (1)
  - HERPES ZOSTER INFECTION NEUROLOGICAL [None]
